FAERS Safety Report 24031888 (Version 1)
Quarter: 2024Q2

REPORT INFORMATION
  Report Type: Spontaneous
  Country: CN (occurrence: CN)
  Receive Date: 20240629
  Receipt Date: 20240629
  Transmission Date: 20240715
  Serious: Yes (Hospitalization, Other)
  Sender: FDA-Public Use
  Company Number: None

PATIENT
  Age: 24 Year
  Sex: Female

DRUGS (3)
  1. MESNA [Suspect]
     Active Substance: MESNA
     Indication: Soft tissue sarcoma
     Dosage: 0.4 G, ONE TIME IN ONE DAY, DAY 1 - DAY 4
     Route: 042
     Dates: start: 20231222, end: 20231225
  2. IFOSFAMIDE [Suspect]
     Active Substance: IFOSFAMIDE
     Indication: Soft tissue sarcoma
     Dosage: 3.5 G, ONE TIME IN ONE DAY, DAY 1 - DAY 3
     Route: 042
     Dates: start: 20231222, end: 20231224
  3. EPIRUBICIN HYDROCHLORIDE [Suspect]
     Active Substance: EPIRUBICIN HYDROCHLORIDE
     Indication: Soft tissue sarcoma
     Dosage: 60 MG, ONE TIME IN ONE DAY, DAY 1 - DAY 2
     Route: 042
     Dates: start: 20231222, end: 20231223

REACTIONS (1)
  - Myelosuppression [Recovering/Resolving]

NARRATIVE: CASE EVENT DATE: 20240102
